FAERS Safety Report 16981757 (Version 2)
Quarter: 2019Q4

REPORT INFORMATION
  Report Type: Spontaneous
  Country: PL (occurrence: PL)
  Receive Date: 20191101
  Receipt Date: 20191107
  Transmission Date: 20200122
  Serious: Yes (Other)
  Sender: FDA-Public Use
  Company Number: PL-ASTRAZENECA-2019SF53871

PATIENT

DRUGS (1)
  1. BRILIQUE [Suspect]
     Active Substance: TICAGRELOR
     Dosage: 90 MG
     Route: 048

REACTIONS (2)
  - Ventricular arrhythmia [Unknown]
  - Myocardial infarction [Unknown]
